FAERS Safety Report 23873579 (Version 2)
Quarter: 2024Q2

REPORT INFORMATION
  Report Type: Spontaneous
  Country: US (occurrence: US)
  Receive Date: 20240520
  Receipt Date: 20240605
  Transmission Date: 20240716
  Serious: Yes (Other)
  Sender: FDA-Public Use
  Company Number: US-Stemline Therapeutics, Inc.-2024ST001022

PATIENT
  Age: 63 Year
  Sex: Female

DRUGS (1)
  1. ORSERDU [Suspect]
     Active Substance: ELACESTRANT
     Indication: Product used for unknown indication
     Route: 048
     Dates: start: 20231128

REACTIONS (11)
  - Pleural effusion [Unknown]
  - Investigation abnormal [Unknown]
  - Lymphadenopathy [Unknown]
  - Lymph node pain [Unknown]
  - Axillary mass [Unknown]
  - White blood cell count decreased [Unknown]
  - Blood urine present [Unknown]
  - Lymphoedema [Not Recovered/Not Resolved]
  - Diarrhoea [Unknown]
  - Cough [Unknown]
  - Dyspnoea [Unknown]

NARRATIVE: CASE EVENT DATE: 20231221
